FAERS Safety Report 6834267-7 (Version None)
Quarter: 2010Q3

REPORT INFORMATION
  Report Type: 
  Country: None (occurrence: None)
  Receive Date: 20100712
  Receipt Date: 20070419
  Transmission Date: 20110219
  Serious: No
  Sender: FDA-Public Use
  Company Number: US-PFIZER INC-2007033196

PATIENT
  Sex: Male
  Weight: 98.88 kg

DRUGS (3)
  1. CHANTIX [Suspect]
     Indication: SMOKING CESSATION THERAPY
     Dates: start: 20070413
  2. ATENOLOL [Concomitant]
     Dates: end: 20070418
  3. CLONAZEPAM [Concomitant]

REACTIONS (1)
  - NIGHTMARE [None]
